FAERS Safety Report 7412023-9 (Version None)
Quarter: 2011Q2

REPORT INFORMATION
  Report Type: 
  Country: None (occurrence: None)
  Receive Date: 20110413
  Receipt Date: 20110404
  Transmission Date: 20111010
  Serious: Yes (Hospitalization)
  Sender: FDA-Public Use
  Company Number: US-ASTRAZENECA-2011SE19197

PATIENT
  Sex: Male

DRUGS (5)
  1. METFORMIN HCL [Concomitant]
  2. PLAVIX [Concomitant]
  3. ST JOSEPHS ASPRIN [Concomitant]
  4. CRESTOR [Suspect]
     Route: 048
  5. QUINAPRIL [Concomitant]

REACTIONS (1)
  - CARDIOVASCULAR DISORDER [None]
